FAERS Safety Report 7557047-6 (Version None)
Quarter: 2011Q2

REPORT INFORMATION
  Report Type: 
  Country: None (occurrence: None)
  Receive Date: 20110620
  Receipt Date: 20110617
  Transmission Date: 20111010
  Serious: Yes (Death, Other)
  Sender: FDA-Public Use
  Company Number: PHFR2010GB05892

PATIENT
  Sex: Female

DRUGS (4)
  1. AMISULPRIDE [Suspect]
     Indication: PSYCHOTIC DISORDER
     Dosage: 200 MG, DAILY
     Route: 048
     Dates: start: 20090323, end: 20100126
  2. CLOZAPINE [Suspect]
     Indication: SCHIZOPHRENIA
     Dosage: 300 MG, QD
     Route: 048
     Dates: start: 20080612
  3. CLOZAPINE [Suspect]
     Indication: PSYCHOTIC DISORDER
     Dosage: 350 MG, DAILY
     Route: 048
     Dates: start: 20100729
  4. HYOSCINE HYDROBROMIDE [Concomitant]
     Indication: SALIVARY HYPERSECRETION
     Dosage: 300 UG, DAILY
     Route: 048
     Dates: start: 20100218

REACTIONS (3)
  - DEATH [None]
  - DYSPNOEA [None]
  - LIVER FUNCTION TEST ABNORMAL [None]
